FAERS Safety Report 16175221 (Version 1)
Quarter: 2019Q2

REPORT INFORMATION
  Report Type: Spontaneous
  Country: US (occurrence: US)
  Receive Date: 20190409
  Receipt Date: 20190409
  Transmission Date: 20190711
  Serious: Yes (Other)
  Sender: FDA-Public Use
  Company Number: US-PFIZER INC-2016577325

PATIENT
  Age: 54 Year
  Sex: Female
  Weight: 54.43 kg

DRUGS (12)
  1. LYRICA [Suspect]
     Active Substance: PREGABALIN
     Indication: PAIN
     Dosage: 75 MG, 2X/DAY
     Route: 048
     Dates: start: 20160908
  2. BUPROPION HCL ER [Concomitant]
     Active Substance: BUPROPION HYDROCHLORIDE
     Dosage: 450 MG, 1X/DAY  [150 MG EVERY MORNING. 3 TABS EACH MORNING]
     Route: 048
     Dates: start: 20161116
  3. FLEXERIL [Concomitant]
     Active Substance: CYCLOBENZAPRINE HYDROCHLORIDE
     Indication: MUSCLE SPASMS
     Dosage: 10 MG, AS NEEDED [EVERY 8 HOURS AS NEEDED]
     Route: 048
     Dates: start: 20160911
  4. PROVENTIL [Concomitant]
     Active Substance: ALBUTEROL
     Dosage: 3 ML, 4X/DAY
     Route: 045
     Dates: start: 20150928
  5. ALBUTEROL [SALBUTAMOL] [Concomitant]
     Active Substance: ALBUTEROL
     Indication: WHEEZING
     Dosage: UNK UNK, AS NEEDED (INHALE 2 PUFFS INTO THE LUNGS EVERY 6 HOURS AS NEEDED)
     Route: 045
     Dates: start: 20151118
  6. LYRICA [Suspect]
     Active Substance: PREGABALIN
     Dosage: UNK
  7. DESYREL [Concomitant]
     Active Substance: TRAZODONE HYDROCHLORIDE
     Dosage: 100 MG, 1X/DAY [NIGHTLY]
     Route: 048
     Dates: start: 20160907
  8. NORCO [Concomitant]
     Active Substance: ACETAMINOPHEN\HYDROCODONE BITARTRATE
     Dosage: 1 DF, AS NEEDED [EVERY 6 HOURS AS NEEDED] [7.5 MG HYDROCODONE; 325 MG ACETAMINOPHEN]
     Route: 048
     Dates: start: 20161012
  9. AMBIEN [Concomitant]
     Active Substance: ZOLPIDEM TARTRATE
     Indication: SLEEP DISORDER
     Dosage: 10 MG, AS NEEDED [NIGHTLY AS NEEDED]
     Route: 048
     Dates: start: 20161111
  10. ALBUTEROL [SALBUTAMOL] [Concomitant]
     Active Substance: ALBUTEROL
     Indication: DYSPNOEA
  11. LYRICA [Suspect]
     Active Substance: PREGABALIN
     Indication: NEUROPATHY PERIPHERAL
     Dosage: 75 MG, AS NEEDED (TAKE 1 TABLET PO Q 8 HR PRN.)
     Route: 048
  12. LYRICA [Suspect]
     Active Substance: PREGABALIN
     Dosage: 150 MG, 2X/DAY
     Route: 048

REACTIONS (1)
  - Cerebrovascular accident [Unknown]
